FAERS Safety Report 9665794 (Version 1)
Quarter: 2013Q4

REPORT INFORMATION
  Report Type: Spontaneous
  Country: US (occurrence: None)
  Receive Date: 20131031
  Receipt Date: 20131031
  Transmission Date: 20140711
  Serious: Yes (Other)
  Sender: FDA-Public Use
  Company Number: None

PATIENT
  Age: 38 Year
  Sex: Female
  Weight: 76.2 kg

DRUGS (1)
  1. VIIBRYD 30MG [Suspect]
     Indication: ANXIETY
     Route: 048

REACTIONS (7)
  - Subcutaneous abscess [None]
  - Subcutaneous abscess [None]
  - Subcutaneous abscess [None]
  - Abdominal abscess [None]
  - Abscess limb [None]
  - Subcutaneous abscess [None]
  - Abscess [None]
